FAERS Safety Report 7413319-7 (Version None)
Quarter: 2011Q2

REPORT INFORMATION
  Report Type: 
  Country: None (occurrence: None)
  Receive Date: 20110413
  Receipt Date: 20100929
  Transmission Date: 20111010
  Serious: No
  Sender: FDA-Public Use
  Company Number: US-ASTRAZENECA-2010SE46008

PATIENT
  Sex: Female

DRUGS (3)
  1. ATENOLOL [Suspect]
  2. LEXAPRO [Suspect]
  3. TOPAMAX [Suspect]

REACTIONS (1)
  - MIGRAINE [None]
